FAERS Safety Report 24941160 (Version 5)
Quarter: 2025Q2

REPORT INFORMATION
  Report Type: Spontaneous
  Country: US (occurrence: US)
  Receive Date: 20250207
  Receipt Date: 20250519
  Transmission Date: 20250717
  Serious: Yes (Death, Other)
  Sender: BIOVITRUM
  Company Number: US-BIOVITRUM-2025-US-001718

PATIENT
  Age: 75 Year
  Sex: Male

DRUGS (10)
  1. VONJO [Suspect]
     Active Substance: PACRITINIB
     Indication: Myelofibrosis
     Route: 048
     Dates: start: 20241228
  2. PANTOPRAZOLE [Concomitant]
     Active Substance: PANTOPRAZOLE
     Indication: Product used for unknown indication
  3. LEVOTHYROXINE [Concomitant]
     Active Substance: LEVOTHYROXINE
     Indication: Product used for unknown indication
  4. CALCITRIOL [Concomitant]
     Active Substance: CALCITRIOL
     Indication: Product used for unknown indication
  5. ALLOPURINOL [Concomitant]
     Active Substance: ALLOPURINOL
     Indication: Product used for unknown indication
  6. CARVEDILOL [Concomitant]
     Active Substance: CARVEDILOL
     Indication: Product used for unknown indication
  7. AMLODIPINE [Concomitant]
     Active Substance: AMLODIPINE BESYLATE
     Indication: Product used for unknown indication
  8. VITAMIN D [Concomitant]
     Active Substance: VITAMIN D NOS
     Indication: Product used for unknown indication
  9. GENTLE IRON [Concomitant]
     Indication: Product used for unknown indication
  10. RETACRIT [Concomitant]
     Active Substance: EPOETIN ALFA-EPBX
     Indication: Product used for unknown indication

REACTIONS (9)
  - Muscle spasms [Recovering/Resolving]
  - Product dose omission issue [Unknown]
  - Abdominal pain upper [Unknown]
  - Fatigue [Recovering/Resolving]
  - Anaemia [Unknown]
  - Off label use [Not Recovered/Not Resolved]
  - White blood cell count decreased [Unknown]
  - Intentional dose omission [Unknown]
  - Death [Fatal]

NARRATIVE: CASE EVENT DATE: 20241228
